FAERS Safety Report 19150937 (Version 1)
Quarter: 2021Q2

REPORT INFORMATION
  Report Type: Report from Study
  Country: None (occurrence: GB)
  Receive Date: 20210419
  Receipt Date: 20210419
  Transmission Date: 20210717
  Serious: Yes (Other)
  Sender: FDA-Public Use
  Company Number: GB-ABBVIE-21K-167-3861862-00

PATIENT
  Sex: Male

DRUGS (1)
  1. HUMIRA [Suspect]
     Active Substance: ADALIMUMAB
     Indication: ANKYLOSING SPONDYLITIS
     Route: 058
     Dates: end: 2021

REACTIONS (4)
  - Ocular procedural complication [Recovering/Resolving]
  - Pain [Unknown]
  - Post procedural infection [Unknown]
  - Cataract operation complication [Unknown]

NARRATIVE: CASE EVENT DATE: 2021
